FAERS Safety Report 6331882-4 (Version None)
Quarter: 2009Q3

REPORT INFORMATION
  Report Type: 
  Country: None (occurrence: None)
  Receive Date: 20090826
  Receipt Date: 20090805
  Transmission Date: 20100115
  Serious: Yes (Hospitalization)
  Sender: FDA-Public Use
  Company Number: 2009-200921-NL

PATIENT
  Age: 26 Year
  Sex: Female
  Weight: 113.4 kg

DRUGS (1)
  1. NUVARING [Suspect]
     Indication: DRUG USE FOR UNKNOWN INDICATION
     Dates: start: 20070613, end: 20070701

REACTIONS (2)
  - HYPOKALAEMIA [None]
  - PULMONARY EMBOLISM [None]
